FAERS Safety Report 22787199 (Version 5)
Quarter: 2025Q4

REPORT INFORMATION
  Report Type: Report from Study
  Country: EU (occurrence: EU)
  Receive Date: 20230804
  Receipt Date: 20251121
  Transmission Date: 20260118
  Serious: Yes (Other)
  Sender: NOVARTIS
  Company Number: EU-002147023-NVSC2023FR150109

PATIENT
  Sex: Female

DRUGS (4)
  1. VIJOICE [Suspect]
     Active Substance: ALPELISIB
     Indication: Hereditary haemorrhagic telangiectasia
     Dosage: 125 MG, BID
     Route: 048
     Dates: start: 202301, end: 202304
  2. VIJOICE [Suspect]
     Active Substance: ALPELISIB
     Dosage: 125 MG, QID
     Route: 048
     Dates: start: 202304, end: 202304
  3. VIJOICE [Suspect]
     Active Substance: ALPELISIB
     Dosage: 125 MG, BID
     Route: 048
     Dates: start: 202304, end: 202307
  4. VIJOICE [Suspect]
     Active Substance: ALPELISIB
     Dosage: 125 MG, TID
     Route: 048
     Dates: start: 202307, end: 202307

REACTIONS (3)
  - Diabetes mellitus [Recovering/Resolving]
  - Drug ineffective [Unknown]
  - Incorrect dose administered [Unknown]

NARRATIVE: CASE EVENT DATE: 20230401
